FAERS Safety Report 5533914-X (Version None)
Quarter: 2007Q4

REPORT INFORMATION
  Report Type: 
  Country: None (occurrence: None)
  Receive Date: 20071129
  Receipt Date: 20071115
  Transmission Date: 20080405
  Serious: Yes (Hospitalization, Other)
  Sender: FDA-Public Use
  Company Number: 02100-JPN-07-0574

PATIENT
  Age: 73 Year
  Sex: Male

DRUGS (4)
  1. CILOSTAZOL [Suspect]
     Indication: CEREBRAL INFARCTION
     Dosage: ONE OF 200 MG OR 81 MG
     Route: 048
     Dates: start: 20050324, end: 20070919
  2. GLIBENCLAMIDE [Concomitant]
  3. VOGLIBOSE [Concomitant]
  4. LOSARTAN POTASSIUM [Concomitant]

REACTIONS (5)
  - AORTIC ANEURYSM [None]
  - ARTERIOSCLEROSIS OBLITERANS [None]
  - FEMORAL ARTERY OCCLUSION [None]
  - ILIAC ARTERY STENOSIS [None]
  - PERIPHERAL ARTERY DISSECTION [None]
